FAERS Safety Report 10045987 (Version 2)
Quarter: 2014Q1

REPORT INFORMATION
  Report Type: Spontaneous
  Country: US (occurrence: US)
  Receive Date: 20140330
  Receipt Date: 20140330
  Transmission Date: 20141002
  Serious: Yes (Disabling)
  Sender: FDA-Public Use
  Company Number: US-GE HEALTHCARE MEDICAL DIAGNOSTICS-OSCN-PR-0806S-0367

PATIENT
  Age: 54 Year
  Sex: Male

DRUGS (2)
  1. OMNISCAN [Suspect]
     Indication: PALLOR
     Dates: start: 20040824, end: 20040824
  2. OMNISCAN [Suspect]
     Indication: PAIN IN EXTREMITY
     Dates: start: 20070226, end: 20070226

REACTIONS (1)
  - Nephrogenic systemic fibrosis [Not Recovered/Not Resolved]
